FAERS Safety Report 9003738 (Version 1)
Quarter: 2013Q1

REPORT INFORMATION
  Report Type: Spontaneous
  Country: US (occurrence: US)
  Receive Date: 20130108
  Receipt Date: 20130108
  Transmission Date: 20140127
  Serious: No
  Sender: FDA-Public Use
  Company Number: US-GLAXOSMITHKLINE-A0969904A

PATIENT
  Age: 49 Year
  Sex: Female

DRUGS (9)
  1. LOVAZA [Suspect]
     Indication: FATIGUE
     Dosage: 2CAP TWICE PER DAY
     Route: 048
     Dates: start: 20120222
  2. OXYCODONE [Concomitant]
  3. DIAZEPAM [Concomitant]
  4. WELLBUTRIN [Concomitant]
  5. MULTIVITAMIN [Concomitant]
  6. VITAMIN D [Concomitant]
  7. VITAMIN E [Concomitant]
  8. VITAMIN C [Concomitant]
  9. VITAMIN B [Concomitant]

REACTIONS (2)
  - Weight decreased [Unknown]
  - Therapeutic response unexpected [Unknown]
